FAERS Safety Report 25663146 (Version 1)
Quarter: 2025Q3

REPORT INFORMATION
  Report Type: Spontaneous
  Country: AU (occurrence: AU)
  Receive Date: 20250811
  Receipt Date: 20250811
  Transmission Date: 20251021
  Serious: Yes (Other)
  Sender: ACCORD
  Company Number: None

PATIENT
  Age: 13 Year
  Sex: Male

DRUGS (1)
  1. METHOTREXATE [Suspect]
     Active Substance: METHOTREXATE
     Indication: Product used for unknown indication

REACTIONS (10)
  - Acute kidney injury [Unknown]
  - Drug clearance decreased [Unknown]
  - Drug metabolite level high [Unknown]
  - Hypertensive crisis [Unknown]
  - Hypervolaemia [Unknown]
  - Nephropathy toxic [Unknown]
  - Pleural effusion [Unknown]
  - Pulmonary oedema [Unknown]
  - Seizure [Unknown]
  - Status epilepticus [Unknown]
